FAERS Safety Report 6071474-8 (Version None)
Quarter: 2009Q1

REPORT INFORMATION
  Report Type: 
  Country: None (occurrence: None)
  Receive Date: 20090210
  Receipt Date: 20090203
  Transmission Date: 20090719
  Serious: Yes (Death)
  Sender: FDA-Public Use
  Company Number: JP-RANBAXY-2008RR-19509

PATIENT
  Sex: Female
  Weight: 44 kg

DRUGS (3)
  1. ATENOLOL [Suspect]
     Indication: INTENTIONAL OVERDOSE
     Dosage: 300 MG, UNK
     Route: 048
  2. PILSICAINIDE [Suspect]
     Indication: INTENTIONAL OVERDOSE
     Dosage: 300 MG, UNK
     Route: 048
  3. ASPIRIN [Concomitant]
     Dosage: 800 MG, UNK

REACTIONS (2)
  - ARRHYTHMIA [None]
  - OVERDOSE [None]
